FAERS Safety Report 8519427-1 (Version None)
Quarter: 2012Q3

REPORT INFORMATION
  Report Type: 
  Country: None (occurrence: None)
  Receive Date: 20120718
  Receipt Date: 20120713
  Transmission Date: 20120928
  Serious: Yes (Death, Life-Threatening, Hospitalization)
  Sender: FDA-Public Use
  Company Number: DE-TEVA-348774USA

PATIENT
  Age: 77 Year
  Sex: Female

DRUGS (1)
  1. TREANDA [Suspect]
     Route: 042
     Dates: start: 20111127

REACTIONS (4)
  - TUMOUR LYSIS SYNDROME [None]
  - HYPOCALCAEMIA [None]
  - HYPERKALAEMIA [None]
  - RENAL FAILURE ACUTE [None]
